FAERS Safety Report 17048717 (Version 1)
Quarter: 2019Q4

REPORT INFORMATION
  Report Type: Spontaneous
  Country: ES (occurrence: ES)
  Receive Date: 20191119
  Receipt Date: 20191119
  Transmission Date: 20200122
  Serious: Yes (Other)
  Sender: FDA-Public Use
  Company Number: ES-PFIZER INC-2019497510

PATIENT
  Age: 25 Year
  Sex: Female
  Weight: 52 kg

DRUGS (1)
  1. LOETTE DIARIO [Suspect]
     Active Substance: ETHINYL ESTRADIOL\LEVONORGESTREL
     Indication: MENSTRUAL DISORDER
     Dosage: 1 DF, DAILY (1 TABLET DAILY)
     Route: 048
     Dates: start: 2012, end: 20191010

REACTIONS (4)
  - Bile duct stone [Recovering/Resolving]
  - Cholelithiasis [Recovered/Resolved]
  - Product use in unapproved indication [Unknown]
  - Off label use [Unknown]

NARRATIVE: CASE EVENT DATE: 201601
